FAERS Safety Report 25929119 (Version 1)
Quarter: 2025Q4

REPORT INFORMATION
  Report Type: Spontaneous
  Country: GB (occurrence: GB)
  Receive Date: 20251016
  Receipt Date: 20251016
  Transmission Date: 20260117
  Serious: Yes (Other)
  Sender: AMGEN
  Company Number: GB-AMGEN-GBRSP2025204454

PATIENT
  Age: 78 Year
  Sex: Female

DRUGS (1)
  1. ARANESP [Suspect]
     Active Substance: DARBEPOETIN ALFA
     Indication: Product used for unknown indication
     Dosage: 20 MICROGRAM, QMO
     Route: 058

REACTIONS (3)
  - Deafness [Unknown]
  - Blood test abnormal [Unknown]
  - Therapy interrupted [Unknown]
